FAERS Safety Report 16033756 (Version 1)
Quarter: 2019Q1

REPORT INFORMATION
  Report Type: Report from Study
  Country: RU (occurrence: RU)
  Receive Date: 20190305
  Receipt Date: 20190305
  Transmission Date: 20190418
  Serious: Yes (Hospitalization)
  Sender: FDA-Public Use
  Company Number: RU-ASTRAZENECA-2019SE13002

PATIENT
  Age: 72 Year
  Sex: Female
  Weight: 101 kg

DRUGS (8)
  1. FORXIGA [Suspect]
     Active Substance: DAPAGLIFLOZIN
     Indication: TYPE 2 DIABETES MELLITUS
     Route: 048
     Dates: start: 20181201
  2. ENALAPRIL [Concomitant]
     Active Substance: ENALAPRIL
  3. WARFARIN [Concomitant]
     Active Substance: WARFARIN
  4. HEPARIN [Concomitant]
     Active Substance: HEPARIN SODIUM
  5. BISOPROLOL [Concomitant]
     Active Substance: BISOPROLOL
  6. DETRALEX [Concomitant]
     Active Substance: DIOSMIN\HESPERIDIN
  7. AMARYL [Concomitant]
     Active Substance: GLIMEPIRIDE
  8. VEROSPIRON [Concomitant]
     Active Substance: SPIRONOLACTONE

REACTIONS (3)
  - Erythema [Not Recovered/Not Resolved]
  - Drug ineffective [Not Recovered/Not Resolved]
  - Blood glucose increased [Recovered/Resolved]

NARRATIVE: CASE EVENT DATE: 20181201
